FAERS Safety Report 4385082-8 (Version None)
Quarter: 2004Q2

REPORT INFORMATION
  Report Type: 
  Country: None (occurrence: None)
  Receive Date: 20040615
  Receipt Date: 20040615
  Transmission Date: 20050107
  Serious: Yes (Hospitalization)
  Sender: FDA-Public Use
  Company Number: None

PATIENT
  Sex: Male
  Weight: 36.3 kg

DRUGS (13)
  1. RIBAVIRIN [Suspect]
     Indication: HEPATITIS C
     Dosage: 1000 MG PO QD
     Route: 048
     Dates: start: 20040116, end: 20040213
  2. ASCORBIC ACID [Concomitant]
  3. ASPIRIN [Concomitant]
  4. CARBAMAZEPINE [Concomitant]
  5. DILTIAZEM [Concomitant]
  6. DOXEPIN HCL [Concomitant]
  7. EPOGEN [Concomitant]
  8. HYDROCHLOROTHIAZIDE [Concomitant]
  9. INSULIN [Concomitant]
  10. LISINOPRIL [Concomitant]
  11. M.V.I. [Concomitant]
  12. PEGINFERON ALFA 2A [Concomitant]
  13. OMEPRAZOLE [Concomitant]

REACTIONS (2)
  - HAEMOGLOBIN DECREASED [None]
  - HAEMOLYSIS [None]
